FAERS Safety Report 8116007-7 (Version None)
Quarter: 2011Q4

REPORT INFORMATION
  Report Type: 
  Country: None (occurrence: None)
  Receive Date: 20111227
  Receipt Date: 20111128
  Transmission Date: 20120403
  Serious: Yes (Other)
  Sender: FDA-Public Use
  Company Number: PHHY2011US63650

PATIENT
  Age: 51 Year
  Sex: Female

DRUGS (9)
  1. LEXAPRO [Concomitant]
  2. GILENYA [Suspect]
     Indication: MULTIPLE SCLEROSIS RELAPSE
     Dosage: 0.5 MG, QD, ORAL, 0.5 MG, QD, ORAL
     Route: 048
     Dates: start: 20110217
  3. GILENYA [Suspect]
     Indication: MULTIPLE SCLEROSIS RELAPSE
     Dosage: 0.5 MG, QD, ORAL, 0.5 MG, QD, ORAL
     Route: 048
     Dates: start: 20110308
  4. CALCIUM CARBONATE [Concomitant]
  5. ROPINIROLE [Concomitant]
  6. MAGNESIUM (MAGNESIUM) [Concomitant]
  7. VITAMIN D [Concomitant]
  8. CIPRO [Concomitant]
  9. PROVIGIL [Concomitant]

REACTIONS (7)
  - CD4 LYMPHOCYTES DECREASED [None]
  - SINUSITIS [None]
  - URINE ANALYSIS ABNORMAL [None]
  - CYSTITIS [None]
  - FATIGUE [None]
  - FULL BLOOD COUNT DECREASED [None]
  - CENTRAL NERVOUS SYSTEM LESION [None]
